FAERS Safety Report 21631950 (Version 1)
Quarter: 2022Q4

REPORT INFORMATION
  Report Type: Report from Study
  Country: IE (occurrence: IE)
  Receive Date: 20221123
  Receipt Date: 20221123
  Transmission Date: 20230112
  Serious: Yes (Hospitalization, Other)
  Sender: FDA-Public Use
  Company Number: IE-LEO Pharma-344297

PATIENT
  Age: 21 Year
  Sex: Male

DRUGS (2)
  1. BRODALUMAB [Suspect]
     Active Substance: BRODALUMAB
     Indication: Hidradenitis
     Dosage: DOSAGE: 210 MG AT WEEKS 0, 1, AND 2, FOLLOWED BY EVERY TWO WEEKS STOPPED: APPROX. 2 AND A HALF MONTH
     Route: 065
     Dates: start: 20220513, end: 202208
  2. CLINDAMYCIN [Concomitant]
     Active Substance: CLINDAMYCIN
     Indication: Product used for unknown indication
     Dosage: 300 MG,1 IN 1 D

REACTIONS (4)
  - Crohn^s disease [Unknown]
  - Abscess limb [Unknown]
  - Groin abscess [Not Recovered/Not Resolved]
  - Off label use [Unknown]

NARRATIVE: CASE EVENT DATE: 20220513
